FAERS Safety Report 8785929 (Version 3)
Quarter: 2012Q4

REPORT INFORMATION
  Report Type: 
  Country: JP (occurrence: JP)
  Receive Date: 20120914
  Receipt Date: 20121107
  Transmission Date: 20130627
  Serious: Yes (Hospitalization)
  Sender: FDA-Public Use
  Company Number: PHHY2012JP079656

PATIENT
  Age: 68 Year
  Sex: Female
  Weight: 50 kg

DRUGS (6)
  1. AREDIA [Suspect]
     Indication: METASTASES TO BONE
     Dosage: UNK UKN, UNK
     Route: 041
     Dates: start: 20060125, end: 20060906
  2. ZOMETA [Suspect]
     Indication: METASTASES TO BONE
     Dosage: UNK UKN, UNK
     Route: 041
     Dates: start: 20061004
  3. ZOMETA [Suspect]
     Dosage: UNK UKN, UNK
     Route: 041
     Dates: start: 20071031, end: 20071127
  4. ZOMETA [Suspect]
     Dosage: UNK UKN, UNK
     Route: 041
     Dates: start: 20091125, end: 20100523
  5. ZOMETA [Suspect]
     Dosage: UNK UKN, UNK
     Route: 041
     Dates: start: 20100524, end: 20101208
  6. XELODA [Concomitant]
     Dosage: UNK UKN, UNK
     Route: 048

REACTIONS (7)
  - Osteonecrosis of jaw [Recovering/Resolving]
  - Pain in jaw [Unknown]
  - Primary sequestrum [Unknown]
  - Exposed bone in jaw [Unknown]
  - Tooth disorder [Unknown]
  - Tooth loss [Unknown]
  - Osteomyelitis [Unknown]
